FAERS Safety Report 24414385 (Version 2)
Quarter: 2024Q4

REPORT INFORMATION
  Report Type: Spontaneous
  Country: US (occurrence: US)
  Receive Date: 20241009
  Receipt Date: 20241016
  Transmission Date: 20250115
  Serious: Yes (Other)
  Sender: NOVO NORDISK
  Company Number: US-NOVOPROD-1293603

PATIENT
  Age: 67 Year
  Sex: Female

DRUGS (2)
  1. WEGOVY [Suspect]
     Active Substance: SEMAGLUTIDE
     Indication: Hypertension
  2. WEGOVY [Suspect]
     Active Substance: SEMAGLUTIDE
     Indication: Obesity
     Dosage: 1.7 MG
     Route: 058
     Dates: start: 20231002, end: 20240923

REACTIONS (2)
  - Electrocardiogram QT prolonged [Recovered/Resolved]
  - Magnesium deficiency [Recovered/Resolved]

NARRATIVE: CASE EVENT DATE: 20240308
